FAERS Safety Report 5999276-9 (Version None)
Quarter: 2008Q4

REPORT INFORMATION
  Report Type: 
  Country: None (occurrence: None)
  Receive Date: 20081215
  Receipt Date: 20080805
  Transmission Date: 20090506
  Serious: No
  Sender: FDA-Public Use
  Company Number: US-AMGEN-KDL299462

PATIENT
  Sex: Female

DRUGS (2)
  1. ENBREL [Suspect]
     Indication: RHEUMATOID ARTHRITIS
     Route: 058
     Dates: start: 19991201
  2. METHOTREXATE [Concomitant]

REACTIONS (6)
  - ASTHMA [None]
  - COUGH [None]
  - INJECTION SITE IRRITATION [None]
  - OROPHARYNGEAL PAIN [None]
  - PNEUMONIA [None]
  - POSTNASAL DRIP [None]
